FAERS Safety Report 5775752-9 (Version None)
Quarter: 2008Q2

REPORT INFORMATION
  Report Type: 
  Country: None (occurrence: None)
  Receive Date: 20080617
  Receipt Date: 20080610
  Transmission Date: 20081010
  Serious: Yes (Death)
  Sender: FDA-Public Use
  Company Number: US-BOEHRINGER INGELHEIM GMBH, GERMANY-2008-BP-09054RO

PATIENT
  Age: 26 Year
  Sex: Female

DRUGS (1)
  1. DEXAMETHASONE TAB [Suspect]
     Indication: ADRENAL MASS
     Route: 048

REACTIONS (5)
  - HYPERGLYCAEMIA [None]
  - METABOLIC ACIDOSIS [None]
  - PHAEOCHROMOCYTOMA [None]
  - PULMONARY OEDEMA [None]
  - SHOCK [None]
